FAERS Safety Report 8909090 (Version 1)
Quarter: 2012Q4

REPORT INFORMATION
  Report Type: 
  Country: US (occurrence: US)
  Receive Date: 20121113
  Receipt Date: 20121113
  Transmission Date: 20130627
  Serious: No
  Sender: FDA-Public Use
  Company Number: US-AMGEN-USASP2012011249

PATIENT
  Age: 29 Year
  Sex: Female

DRUGS (6)
  1. ENBREL [Suspect]
     Indication: PRODUCT USED FOR UNKNOWN INDICATION
     Dosage: 50 mg, qwk
     Route: 058
  2. NABUMETONE [Concomitant]
     Dosage: 750 mg, UNK
  3. LEVOTHYROXIN [Concomitant]
     Dosage: 100 mug, UNK
  4. VITAMIN B12                        /00056201/ [Concomitant]
     Dosage: 1000 mug, UNK
  5. VITAMIN D /00107901/ [Concomitant]
  6. PRENATAL                           /00231801/ [Concomitant]

REACTIONS (1)
  - Injection site pruritus [Unknown]
